FAERS Safety Report 25819533 (Version 1)
Quarter: 2025Q3

REPORT INFORMATION
  Report Type: Spontaneous
  Country: US (occurrence: US)
  Receive Date: 20250918
  Receipt Date: 20250918
  Transmission Date: 20251020
  Serious: No
  Sender: SANOFI AVENTIS
  Company Number: US-SA-2025SA279869

PATIENT
  Age: 42 Year
  Sex: Male

DRUGS (4)
  1. SARCLISA [Suspect]
     Active Substance: ISATUXIMAB-IRFC
     Dosage: 722 MG, QOW
     Route: 041
     Dates: start: 20250814
  2. FLOMAX [Concomitant]
     Active Substance: TAMSULOSIN HYDROCHLORIDE
     Dates: start: 20250813
  3. MIDODRINE [Concomitant]
     Active Substance: MIDODRINE
     Dates: start: 20250813
  4. KYPROLIS [Concomitant]
     Active Substance: CARFILZOMIB
     Dates: start: 20250813

REACTIONS (1)
  - Weight increased [Unknown]

NARRATIVE: CASE EVENT DATE: 20250901
